FAERS Safety Report 10585254 (Version 1)
Quarter: 2014Q4

REPORT INFORMATION
  Report Type: Spontaneous
  Country: US (occurrence: US)
  Receive Date: 20141114
  Receipt Date: 20141114
  Transmission Date: 20150529
  Serious: No
  Sender: FDA-Public Use
  Company Number: US-VIVUS-2014V1000490

PATIENT
  Age: 49 Year
  Sex: Female
  Weight: 129.39 kg

DRUGS (1)
  1. QSYMIA [Suspect]
     Active Substance: PHENTERMINE HYDROCHLORIDE\TOPIRAMATE
     Indication: OBESITY
     Route: 048
     Dates: start: 20140802

REACTIONS (5)
  - Fall [Recovered/Resolved]
  - Joint dislocation [Recovered/Resolved]
  - Muscle strain [Recovered/Resolved]
  - Ataxia [Recovered/Resolved]
  - Concussion [Recovered/Resolved]

NARRATIVE: CASE EVENT DATE: 20140814
